FAERS Safety Report 8760789 (Version 1)
Quarter: 2012Q4

REPORT INFORMATION
  Report Type: 
  Country: JP (occurrence: JP)
  Receive Date: 20120830
  Receipt Date: 20120830
  Transmission Date: 20130627
  Serious: Yes (Hospitalization, Other)
  Sender: FDA-Public Use
  Company Number: JP-MPIJNJ-2011-03470

PATIENT

DRUGS (8)
  1. VELCADE [Suspect]
     Indication: MULTIPLE MYELOMA
     Dosage: 2.1 mg, UNK
     Route: 042
     Dates: start: 20110530, end: 20110628
  2. VELCADE [Suspect]
     Dosage: 1.6 mg, UNK
     Route: 042
     Dates: start: 20110712, end: 20110722
  3. PANOBINOSTAT [Suspect]
     Indication: MULTIPLE MYELOMA
     Dosage: 20 mg, UNK
     Route: 048
     Dates: start: 20110530, end: 20110630
  4. PANOBINOSTAT [Suspect]
     Dosage: 15 mg, UNK
     Route: 048
     Dates: start: 20110712, end: 20110723
  5. DEXAMETHASONE [Suspect]
     Indication: MULTIPLE MYELOMA
     Dosage: 20 mg, UNK
     Route: 048
     Dates: start: 20110530, end: 20110723
  6. MUCOSTA [Suspect]
     Indication: PROPHYLAXIS
     Dosage: 100 mg, UNK
     Route: 048
     Dates: start: 20110530, end: 20110723
  7. SPIRIVA [Concomitant]
     Indication: EMPHYSEMA
     Dosage: 18 ug, UNK
     Route: 045
     Dates: start: 201005
  8. EURODIN                            /00425901/ [Concomitant]
     Indication: INSOMNIA
     Dosage: UNK
     Route: 048
     Dates: start: 20110608

REACTIONS (2)
  - Interstitial lung disease [Recovered/Resolved]
  - Blood phosphorus decreased [Unknown]
